FAERS Safety Report 4568447-0 (Version None)
Quarter: 2005Q1

REPORT INFORMATION
  Report Type: 
  Country: None (occurrence: None)
  Receive Date: 20050131
  Receipt Date: 20050120
  Transmission Date: 20050727
  Serious: Yes (Hospitalization)
  Sender: FDA-Public Use
  Company Number: K200500091

PATIENT
  Age: 83 Year
  Sex: Male

DRUGS (4)
  1. ALTACE [Suspect]
     Indication: HYPERTENSION
     Dosage: TITRATED UP TO 5 MG, QD, ORAL
     Route: 048
     Dates: start: 20040101
  2. AMIODARONE HCL [Concomitant]
  3. ASPIRIN [Concomitant]
  4. ANTIBIOTICS [Concomitant]

REACTIONS (4)
  - BLOOD SODIUM DECREASED [None]
  - CONFUSIONAL STATE [None]
  - DEHYDRATION [None]
  - RENAL IMPAIRMENT [None]
